FAERS Safety Report 9868200 (Version 1)
Quarter: 2014Q1

REPORT INFORMATION
  Report Type: Report from Study
  Country: US (occurrence: US)
  Receive Date: 20140204
  Receipt Date: 20140204
  Transmission Date: 20141002
  Serious: Yes (Hospitalization)
  Sender: FDA-Public Use
  Company Number: PHEH2014US002185

PATIENT
  Age: 40 Year
  Sex: Male

DRUGS (1)
  1. EXJADE [Suspect]
     Indication: IRON METABOLISM DISORDER
     Dosage: 1250 MG, QD
     Route: 048

REACTIONS (1)
  - Colitis ulcerative [Unknown]
